FAERS Safety Report 11323722 (Version 3)
Quarter: 2019Q2

REPORT INFORMATION
  Report Type: Other
  Country: US (occurrence: US)
  Receive Date: 20150730
  Receipt Date: 20190510
  Transmission Date: 20190711
  Serious: No
  Sender: FDA-Public Use
  Company Number: US-LUNDBECK-DKLU2001651

PATIENT
  Age: 12 Year
  Sex: Female

DRUGS (5)
  1. CLOBAZAM. [Suspect]
     Active Substance: CLOBAZAM
     Indication: EPILEPSY
     Dosage: 0.18 TO 2.24 MG/KG/DAY
     Route: 065
  2. LACOSAMIDE. [Concomitant]
     Active Substance: LACOSAMIDE
     Indication: EPILEPSY
     Route: 065
  3. CANNABIDIOL [Interacting]
     Active Substance: CANNABIDIOL
     Indication: EPILEPSY
     Route: 065
  4. CANNABIDIOL [Interacting]
     Active Substance: CANNABIDIOL
     Route: 065
  5. LAMOTRIGINE. [Concomitant]
     Active Substance: LAMOTRIGINE
     Indication: EPILEPSY
     Route: 065

REACTIONS (2)
  - Drug interaction [Unknown]
  - Somnolence [Unknown]
